FAERS Safety Report 18279628 (Version 2)
Quarter: 2020Q4

REPORT INFORMATION
  Report Type: Report from Study
  Country: BR (occurrence: BR)
  Receive Date: 20200917
  Receipt Date: 20201015
  Transmission Date: 20210113
  Serious: Yes (Hospitalization, Other)
  Sender: FDA-Public Use
  Company Number: BR-SHIRE-BR202010990

PATIENT

DRUGS (11)
  1. HEMO-8R [Suspect]
     Active Substance: ANTIHEMOPHILIC FACTOR, HUMAN RECOMBINANT
     Indication: FACTOR VIII DEFICIENCY
     Dosage: 1500 INTERNATIONAL UNIT, 3X A WEEK
     Route: 042
     Dates: start: 20150901
  2. NOVOSEVEN [Concomitant]
     Active Substance: COAGULATION FACTOR VIIA RECOMBINANT HUMAN
     Indication: HAEMORRHAGE
  3. VITAMIN C [Concomitant]
     Active Substance: ASCORBIC ACID
     Indication: PRODUCT USED FOR UNKNOWN INDICATION
  4. HEMO-8R [Suspect]
     Active Substance: ANTIHEMOPHILIC FACTOR, HUMAN RECOMBINANT
     Dosage: 1500 INTERNATIONAL UNIT, 3X A WEEK
     Route: 042
     Dates: start: 20200318
  5. FEIBA NF [Suspect]
     Active Substance: ANTI-INHIBITOR COAGULANT COMPLEX
     Dosage: 1500 INTERNATIONAL UNIT, AS REQ^D
     Route: 042
     Dates: start: 20200406, end: 20200411
  6. HEMO-8R [Suspect]
     Active Substance: ANTIHEMOPHILIC FACTOR, HUMAN RECOMBINANT
     Dosage: 759 INTERNATIONAL UNIT
     Route: 042
  7. FEIBA NF [Suspect]
     Active Substance: ANTI-INHIBITOR COAGULANT COMPLEX
     Indication: FACTOR VIII DEFICIENCY
     Dosage: 1500 INTERNATIONAL UNIT, AS REQ^D
     Route: 042
     Dates: start: 20150901
  8. FEIBA NF [Suspect]
     Active Substance: ANTI-INHIBITOR COAGULANT COMPLEX
     Dosage: 1000 INTERNATIONAL UNIT
     Route: 042
  9. HEMO-8R [Suspect]
     Active Substance: ANTIHEMOPHILIC FACTOR, HUMAN RECOMBINANT
     Dosage: 750 INTERNATIONAL UNIT, 3X A WEEK
     Route: 042
  10. FEIBA NF [Suspect]
     Active Substance: ANTI-INHIBITOR COAGULANT COMPLEX
     Indication: HAEMOPHILIA B WITH ANTI FACTOR IX
     Dosage: 1000 TO 1500 INTERNATIONAL UNIT WHENEVER NECESSARY
     Route: 042
     Dates: start: 2019
  11. FEIBA NF [Suspect]
     Active Substance: ANTI-INHIBITOR COAGULANT COMPLEX
     Dosage: 1500 INTERNATIONAL UNIT, AS REQ^D
     Route: 042

REACTIONS (18)
  - Nerve injury [Recovering/Resolving]
  - Immunodeficiency [Unknown]
  - Swelling [Recovering/Resolving]
  - Restlessness [Recovering/Resolving]
  - Abdominal pain upper [Recovering/Resolving]
  - Bedridden [Recovering/Resolving]
  - Joint swelling [Recovering/Resolving]
  - Tooth loss [Recovered/Resolved]
  - Infection [Recovering/Resolving]
  - Head injury [Recovering/Resolving]
  - Feeling cold [Unknown]
  - Limb injury [Not Recovered/Not Resolved]
  - Haemorrhage [Recovered/Resolved]
  - Joint injury [Recovering/Resolving]
  - Peripheral swelling [Recovering/Resolving]
  - Weight decreased [Unknown]
  - Lactose intolerance [Not Recovered/Not Resolved]
  - Mouth injury [Recovered/Resolved]

NARRATIVE: CASE EVENT DATE: 20200404
